FAERS Safety Report 17107442 (Version 3)
Quarter: 2019Q4

REPORT INFORMATION
  Report Type: Report from Study
  Country: FR (occurrence: FR)
  Receive Date: 20191203
  Receipt Date: 20191212
  Transmission Date: 20200122
  Serious: Yes (Hospitalization, Other)
  Sender: FDA-Public Use
  Company Number: FR-ASTRAZENECA-2019SF69129

PATIENT
  Sex: Female

DRUGS (7)
  1. FKB238 [Suspect]
     Active Substance: FKB-238
     Indication: OVARIAN CANCER
     Dosage: 1035 MG
     Route: 042
     Dates: start: 20190704, end: 20190905
  2. OLAPARIB. [Suspect]
     Active Substance: OLAPARIB
     Indication: OVARIAN CANCER
     Route: 048
     Dates: start: 20190704, end: 20190924
  3. ZOPICIONE [Concomitant]
     Indication: STRESS
     Route: 048
     Dates: start: 2017
  4. MEDI4736 [Suspect]
     Active Substance: DURVALUMAB
     Indication: OVARIAN CANCER
     Dosage: EVERY 1 CYCLE
     Route: 042
     Dates: start: 20190704, end: 20190905
  5. MIANSERINE [Concomitant]
     Active Substance: MIANSERIN HYDROCHLORIDE
     Indication: INSOMNIA
     Route: 048
     Dates: start: 201810
  6. OMEPRAZOLE. [Concomitant]
     Active Substance: OMEPRAZOLE
     Indication: GASTROOESOPHAGEAL REFLUX DISEASE
     Route: 048
     Dates: start: 20190710
  7. PRETERAX [Concomitant]
     Active Substance: INDAPAMIDE\PERINDOPRIL
     Indication: HYPERTENSION
     Route: 048
     Dates: start: 2009

REACTIONS (5)
  - Haemolytic anaemia [Not Recovered/Not Resolved]
  - Cough [Not Recovered/Not Resolved]
  - Thrombocytopenia [Not Recovered/Not Resolved]
  - Dyspnoea [Not Recovered/Not Resolved]
  - Pancytopenia [Recovered/Resolved]

NARRATIVE: CASE EVENT DATE: 20190926
